FAERS Safety Report 8620308-3 (Version None)
Quarter: 2012Q3

REPORT INFORMATION
  Report Type: 
  Country: None (occurrence: None)
  Receive Date: 20120824
  Receipt Date: 20120815
  Transmission Date: 20120928
  Serious: Yes (Hospitalization, Other)
  Sender: FDA-Public Use
  Company Number: US-009507513-1208USA007024

PATIENT

DRUGS (2)
  1. FOSAMAX [Suspect]
     Indication: BONE DENSITY DECREASED
     Dosage: 70 MG, UNK
     Route: 048
  2. FOSAMAX PLUS D [Suspect]
     Indication: BONE DENSITY DECREASED
     Dosage: 70 MG, UNK
     Route: 048

REACTIONS (7)
  - ENDODONTIC PROCEDURE [None]
  - ARTHRALGIA [None]
  - UPPER LIMB FRACTURE [None]
  - GAIT DISTURBANCE [None]
  - FEMUR FRACTURE [None]
  - OPEN REDUCTION OF FRACTURE [None]
  - OSTEOARTHRITIS [None]
